FAERS Safety Report 8209812-X (Version None)
Quarter: 2012Q1

REPORT INFORMATION
  Report Type: 
  Country: None (occurrence: None)
  Receive Date: 20120314
  Receipt Date: 20120309
  Transmission Date: 20120608
  Serious: Yes (Death)
  Sender: FDA-Public Use
  Company Number: PHHY2012CN021725

PATIENT
  Age: 71 Year
  Sex: Male

DRUGS (3)
  1. PACLITAXEL [Suspect]
     Indication: ADENOCARCINOMA
  2. CETUXIMAB [Concomitant]
     Route: 042
  3. CARBOPLATIN [Suspect]
     Indication: ADENOCARCINOMA

REACTIONS (2)
  - DEATH [None]
  - THROMBOCYTOPENIA [None]
